FAERS Safety Report 9150018 (Version 3)
Quarter: 2013Q4

REPORT INFORMATION
  Report Type: Spontaneous
  Country: DE (occurrence: None)
  Receive Date: 20130131
  Receipt Date: 20131007
  Transmission Date: 20140711
  Serious: Yes (Hospitalization)
  Sender: FDA-Public Use
  Company Number: 2013MPI00023

PATIENT
  Sex: 0

DRUGS (6)
  1. BRENTUXIMAB VEDOTIN [Suspect]
     Indication: HODGKIN^S DISEASE
     Dosage: QCYCLE
     Dates: start: 20121130, end: 20130104
  2. CYCLOPOSPHAMIDE (CYCLOPHOSPHAMIDE) [Suspect]
     Indication: HODGKIN^S DISEASE
     Dosage: QCYCLE
     Dates: start: 20121201, end: 20130105
  3. DOXOEUBICIN (DOXORUBICIN) [Suspect]
     Indication: HODGKIN^S DISEASE
     Dosage: QCYCLE
     Dates: start: 20121201, end: 20130105
  4. ETOPOSIDE (ETOPOSIDE) [Suspect]
     Indication: HODGKIN^S DISEASE
     Dosage: QCYCLE
     Dates: start: 20121201, end: 20130107
  5. PROCARBAZINE (PROCARBAZINE) [Suspect]
     Indication: HODGKIN^S DISEASE
     Dosage: QCYCLE
     Dates: start: 20121201, end: 20130111
  6. PREDNISONE (PREDNISONE) [Suspect]
     Indication: HODGKIN^S DISEASE
     Dosage: QCYCLE
     Dates: start: 20121201

REACTIONS (2)
  - Febrile neutropenia [None]
  - Oral candidiasis [None]
